FAERS Safety Report 7442461-X (Version None)
Quarter: 2011Q2

REPORT INFORMATION
  Report Type: 
  Country: None (occurrence: None)
  Receive Date: 20110425
  Receipt Date: 20110425
  Transmission Date: 20111010
  Serious: Yes (Hospitalization)
  Sender: FDA-Public Use
  Company Number: None

PATIENT
  Age: 34 Year
  Sex: Male
  Weight: 94.3482 kg

DRUGS (1)
  1. MEFLOQUINE HYDROCHLORIDE [Suspect]
     Indication: MALARIA PROPHYLAXIS
     Dosage: WEEKLY PO
     Route: 048
     Dates: start: 20101115, end: 20110120

REACTIONS (11)
  - MOOD SWINGS [None]
  - TOXICITY TO VARIOUS AGENTS [None]
  - ANXIETY [None]
  - ABNORMAL DREAMS [None]
  - CONFUSIONAL STATE [None]
  - ABNORMAL BEHAVIOUR [None]
  - CARDIAC DISORDER [None]
  - DEPRESSION [None]
  - TINNITUS [None]
  - CHEST DISCOMFORT [None]
  - INSOMNIA [None]
